FAERS Safety Report 11887632 (Version 1)
Quarter: 2016Q1

REPORT INFORMATION
  Report Type: Spontaneous
  Country: US (occurrence: US)
  Receive Date: 20160105
  Receipt Date: 20160105
  Transmission Date: 20160526
  Serious: Yes (Life-Threatening, Hospitalization, Other)
  Sender: FDA-Public Use
  Company Number: US-BRISTOL-MYERS SQUIBB COMPANY-10650307

PATIENT
  Age: 35 Year
  Sex: Female

DRUGS (3)
  1. STAVUDINE. [Suspect]
     Active Substance: STAVUDINE
     Indication: HIV INFECTION
     Dosage: UNK
     Route: 065
     Dates: start: 1998
  2. DIDANOSINE. [Suspect]
     Active Substance: DIDANOSINE
     Indication: HIV INFECTION
     Dosage: UNK
     Route: 065
     Dates: start: 1998
  3. NEVIRAPINE. [Interacting]
     Active Substance: NEVIRAPINE
     Indication: HIV INFECTION
     Dosage: UNK
     Route: 065
     Dates: start: 1998

REACTIONS (7)
  - Disseminated intravascular coagulation [Recovered/Resolved]
  - Caesarean section [Unknown]
  - Acute kidney injury [Recovered/Resolved]
  - Pregnancy [Recovered/Resolved]
  - Lactic acidosis [Recovered/Resolved]
  - Acute hepatic failure [Recovered/Resolved]
  - Normal newborn [Unknown]

NARRATIVE: CASE EVENT DATE: 2000
